FAERS Safety Report 5076764-3 (Version None)
Quarter: 2006Q3

REPORT INFORMATION
  Report Type: 
  Country: None (occurrence: None)
  Receive Date: 20060725
  Receipt Date: 20060419
  Transmission Date: 20061208
  Serious: Yes (Other)
  Sender: FDA-Public Use
  Company Number: 200610959BWH

PATIENT
  Age: 68 Year
  Sex: Male
  Weight: 89.3586 kg

DRUGS (11)
  1. NEXAVAR [Suspect]
     Indication: RENAL CELL CARCINOMA STAGE UNSPECIFIED
     Dosage: SEE IMAGE
     Route: 048
     Dates: start: 20060131, end: 20060219
  2. NEXAVAR [Suspect]
     Indication: RENAL CELL CARCINOMA STAGE UNSPECIFIED
     Dosage: SEE IMAGE
     Route: 048
     Dates: start: 20060327, end: 20060404
  3. NEXAVAR [Suspect]
     Indication: RENAL CELL CARCINOMA STAGE UNSPECIFIED
     Dosage: SEE IMAGE
     Route: 048
     Dates: start: 20051201
  4. DOXAZOSIN MESYLATE [Concomitant]
  5. BENAZEPRIL HYDROCHLORIDE [Concomitant]
  6. ALLOPURINOL [Concomitant]
  7. HYDROCHLOROTHIAZIDE [Concomitant]
  8. ZOCOR [Concomitant]
  9. DILTIAZEM HCL [Concomitant]
  10. PERCOCET [Concomitant]
  11. VITAMIN B6 [Concomitant]

REACTIONS (16)
  - ANAL DISCOMFORT [None]
  - BLISTER [None]
  - BURNING SENSATION [None]
  - DIARRHOEA [None]
  - DISCOMFORT [None]
  - DRY SKIN [None]
  - GAIT DISTURBANCE [None]
  - METATARSALGIA [None]
  - ORAL PAIN [None]
  - PAIN [None]
  - PAIN IN EXTREMITY [None]
  - PALMAR-PLANTAR ERYTHRODYSAESTHESIA SYNDROME [None]
  - PARAESTHESIA [None]
  - RASH [None]
  - SKIN EXFOLIATION [None]
  - STOMATITIS [None]
